FAERS Safety Report 9675452 (Version 1)
Quarter: 2013Q4

REPORT INFORMATION
  Report Type: Spontaneous
  Country: TR (occurrence: TR)
  Receive Date: 20131107
  Receipt Date: 20131107
  Transmission Date: 20140711
  Serious: Yes (Other)
  Sender: FDA-Public Use
  Company Number: PHHY2013TR124472

PATIENT
  Age: 33 Year
  Sex: Male

DRUGS (3)
  1. URIKOLIZ [Suspect]
     Indication: BLOOD URIC ACID INCREASED
     Dosage: 150 MG, UNK
     Route: 048
     Dates: start: 20130910, end: 20131024
  2. SANDIMMUN NEORAL [Concomitant]
     Indication: DERMATITIS ATOPIC
     Dosage: 250 MG, UNK
     Route: 048
     Dates: start: 20130101
  3. METFORMIN [Concomitant]
     Indication: GLUCOSE TOLERANCE IMPAIRED
     Dosage: 1700 MG, UNK
     Route: 048
     Dates: start: 20110101

REACTIONS (3)
  - Nipple pain [Unknown]
  - Nipple exudate bloody [Unknown]
  - Gynaecomastia [Recovered/Resolved with Sequelae]
